FAERS Safety Report 8143313-2 (Version None)
Quarter: 2012Q1

REPORT INFORMATION
  Report Type: 
  Country: None (occurrence: None)
  Receive Date: 20120217
  Receipt Date: 20120214
  Transmission Date: 20120608
  Serious: Yes (Death, Other)
  Sender: FDA-Public Use
  Company Number: ZA-PFIZER INC-2010169465

PATIENT
  Age: 47 Year
  Sex: Male
  Weight: 74.5 kg

DRUGS (1)
  1. SUTENT [Suspect]
     Indication: METASTATIC RENAL CELL CARCINOMA
     Dosage: 50 MG, 1X/DAY(DAILY)
     Route: 048
     Dates: start: 20080915, end: 20081010

REACTIONS (7)
  - STOMATITIS [None]
  - SKIN DISCOLOURATION [None]
  - HAEMATEMESIS [None]
  - DEATH [None]
  - PULMONARY HAEMORRHAGE [None]
  - ASCITES [None]
  - OEDEMA [None]
